FAERS Safety Report 13211999 (Version 3)
Quarter: 2017Q1

REPORT INFORMATION
  Report Type: Report from Study
  Country: BR (occurrence: BR)
  Receive Date: 20170210
  Receipt Date: 20170303
  Transmission Date: 20170428
  Serious: Yes (Hospitalization, Other)
  Sender: FDA-Public Use
  Company Number: BR-ALEXION PHARMACEUTICALS INC.-A201701095

PATIENT
  Age: 19 Year
  Sex: Male

DRUGS (3)
  1. CLAVULIN                           /00756801/ [Concomitant]
     Active Substance: AMOXICILLIN\CLAVULANIC ACID
     Indication: PRODUCT USED FOR UNKNOWN INDICATION
     Route: 065
  2. SOLIRIS [Suspect]
     Active Substance: ECULIZUMAB
     Indication: HAEMOLYTIC URAEMIC SYNDROME
     Dosage: UNK
     Route: 042
  3. SOLIRIS [Suspect]
     Active Substance: ECULIZUMAB
     Dosage: 12000 MG, Q2W
     Route: 042

REACTIONS (7)
  - Biopsy kidney abnormal [Not Recovered/Not Resolved]
  - Renal impairment [Unknown]
  - Treatment failure [Unknown]
  - Drug hypersensitivity [Unknown]
  - Blood creatinine increased [Recovered/Resolved]
  - Inappropriate schedule of drug administration [Unknown]
  - Transplant rejection [Recovering/Resolving]

NARRATIVE: CASE EVENT DATE: 20170127
